FAERS Safety Report 9809203 (Version 2)
Quarter: 2014Q1

REPORT INFORMATION
  Report Type: Report from Study
  Country: GB (occurrence: GB)
  Receive Date: 20140110
  Receipt Date: 20140116
  Transmission Date: 20141002
  Serious: Yes (Hospitalization)
  Sender: FDA-Public Use
  Company Number: GB-ONYX-2014-0049

PATIENT
  Age: 59 Year
  Sex: Female

DRUGS (21)
  1. CARFILZOMIB [Suspect]
     Indication: PLASMA CELL MYELOMA
     Route: 042
     Dates: start: 20130813, end: 20130814
  2. CARFILZOMIB [Suspect]
     Route: 042
     Dates: start: 20130820, end: 20130828
  3. CARFILZOMIB [Suspect]
     Route: 042
     Dates: start: 20130910, end: 20131009
  4. CARFILZOMIB [Suspect]
     Route: 042
     Dates: start: 20131022, end: 20131230
  5. DEXAMETHASONE [Suspect]
     Indication: PLASMA CELL MYELOMA
     Route: 048
     Dates: start: 20130813, end: 20131002
  6. DEXAMETHASONE [Suspect]
     Route: 048
     Dates: start: 20131008, end: 20131009
  7. DEXAMETHASONE [Suspect]
     Route: 048
     Dates: start: 20131022, end: 20131127
  8. DIAZEPAM [Concomitant]
     Indication: MUSCLE SPASMS
     Route: 048
     Dates: start: 200908
  9. MORPHINE SULPHATE [Concomitant]
     Indication: ANALGESIC THERAPY
     Route: 048
     Dates: start: 200908
  10. ACICLOVIR [Concomitant]
     Indication: ANTIVIRAL PROPHYLAXIS
     Route: 048
     Dates: start: 20130813
  11. LANSOPRAZOLE [Concomitant]
     Indication: PROPHYLAXIS
     Route: 048
     Dates: start: 20130813
  12. METOCLOPRAMIDE [Concomitant]
     Indication: VOMITING
     Route: 048
     Dates: start: 20130813
  13. FELODOPINE [Concomitant]
     Indication: HYPERTENSION
     Route: 048
     Dates: start: 20130831
  14. ADCAL [Concomitant]
     Indication: SUPPLEMENTATION THERAPY
     Route: 048
     Dates: start: 20130101, end: 20131008
  15. ADCAL [Concomitant]
     Route: 048
     Dates: start: 20131009
  16. DOXYCYCLINE [Concomitant]
     Indication: LUNG INFECTION
     Route: 048
     Dates: start: 20131113
  17. BECLOMETASONE [Concomitant]
     Indication: DYSPNOEA
     Route: 055
     Dates: start: 20131115
  18. VENTOLIN INHALER [Concomitant]
     Indication: DYSPNOEA
     Dates: start: 20131115
  19. CHLORPHENAMINE [Concomitant]
     Indication: RASH
     Route: 048
     Dates: start: 20131210
  20. CEFUROXIME [Concomitant]
     Indication: LOWER RESPIRATORY TRACT INFECTION
     Route: 042
     Dates: start: 20131230, end: 20140101
  21. CLARITHROMYCIN [Concomitant]
     Indication: LOWER RESPIRATORY TRACT INFECTION
     Route: 048
     Dates: start: 20140101

REACTIONS (1)
  - Pulmonary embolism [Recovering/Resolving]
